FAERS Safety Report 16924372 (Version 3)
Quarter: 2019Q4

REPORT INFORMATION
  Report Type: Spontaneous
  Country: US (occurrence: US)
  Receive Date: 20191016
  Receipt Date: 20191120
  Transmission Date: 20200122
  Serious: Yes (Other)
  Sender: FDA-Public Use
  Company Number: US-PFIZER INC-2019443222

PATIENT
  Age: 64 Year
  Sex: Female
  Weight: 64 kg

DRUGS (1)
  1. CELEBREX [Suspect]
     Active Substance: CELECOXIB
     Indication: SPONDYLITIS
     Dosage: 200 MG, UNK
     Route: 048

REACTIONS (3)
  - Pain [Unknown]
  - Macular degeneration [Unknown]
  - Blindness [Unknown]
